FAERS Safety Report 11241127 (Version 2)
Quarter: 2015Q3

REPORT INFORMATION
  Report Type: Spontaneous
  Country: US (occurrence: US)
  Receive Date: 20150706
  Receipt Date: 20150814
  Transmission Date: 20151125
  Serious: No
  Sender: FDA-Public Use
  Company Number: US-GLAXOSMITHKLINE-US2015096444

PATIENT
  Sex: Male

DRUGS (1)
  1. ALLI [Suspect]
     Active Substance: ORLISTAT
     Indication: WEIGHT LOSS DIET
     Dosage: UNK
     Dates: start: 20150626, end: 20150702

REACTIONS (4)
  - Weight decreased [Unknown]
  - Weight increased [Not Recovered/Not Resolved]
  - Faecal incontinence [Unknown]
  - Gastrointestinal disorder [Unknown]
